FAERS Safety Report 16543311 (Version 1)
Quarter: 2019Q3

REPORT INFORMATION
  Report Type: Spontaneous
  Country: US (occurrence: US)
  Receive Date: 20190709
  Receipt Date: 20190709
  Transmission Date: 20191004
  Serious: Yes (Other)
  Sender: FDA-Public Use
  Company Number: US-HIKMA PHARMACEUTICALS USA INC.-US-H14001-19-45934

PATIENT
  Age: 67 Year
  Sex: Female

DRUGS (3)
  1. OXALIPLATIN. [Suspect]
     Active Substance: OXALIPLATIN
     Indication: COLORECTAL CANCER
     Route: 065
     Dates: start: 201703, end: 201711
  2. FOLINIC ACID [Suspect]
     Active Substance: LEUCOVORIN
     Indication: COLORECTAL CANCER
     Route: 065
     Dates: start: 201703, end: 201711
  3. FLUOROURACIL. [Suspect]
     Active Substance: FLUOROURACIL
     Indication: COLORECTAL CANCER
     Route: 065
     Dates: start: 201703, end: 201711

REACTIONS (4)
  - Deep vein thrombosis [Unknown]
  - Neuropathy peripheral [Unknown]
  - Ascites [Unknown]
  - Condition aggravated [Unknown]

NARRATIVE: CASE EVENT DATE: 2017
